FAERS Safety Report 13759815 (Version 2)
Quarter: 2017Q3

REPORT INFORMATION
  Report Type: Spontaneous
  Country: DE (occurrence: DE)
  Receive Date: 20170717
  Receipt Date: 20170801
  Transmission Date: 20171127
  Serious: Yes (Hospitalization)
  Sender: FDA-Public Use
  Company Number: DE-009507513-1707DEU004200

PATIENT
  Age: 62 Year
  Sex: Male
  Weight: 93 kg

DRUGS (3)
  1. VALSARTAN. [Concomitant]
     Active Substance: VALSARTAN
     Dosage: 1 UNK, UNK
  2. JARDIANCE [Concomitant]
     Active Substance: EMPAGLIFLOZIN
  3. JANUMET [Suspect]
     Active Substance: METFORMIN HYDROCHLORIDE\SITAGLIPTIN PHOSPHATE
     Indication: DIABETES MELLITUS
     Dosage: 50/1000 (UNIT NOT PROVIDED), BID(STRENGTH: 50/1000 (UNIT NOT PROVIDED))
     Route: 048
     Dates: start: 20160511

REACTIONS (3)
  - Fatigue [Unknown]
  - Gastritis [Unknown]
  - Weight decreased [Unknown]

NARRATIVE: CASE EVENT DATE: 201707
